FAERS Safety Report 12510085 (Version 1)
Quarter: 2016Q2

REPORT INFORMATION
  Report Type: Spontaneous
  Country: US (occurrence: US)
  Receive Date: 20160629
  Receipt Date: 20160629
  Transmission Date: 20160815
  Serious: No
  Sender: FDA-Public Use
  Company Number: US-RB-077469-15

PATIENT
  Age: 55 Year
  Sex: Male

DRUGS (1)
  1. MUCINEX DM MAXIMUM STRENGTH [Suspect]
     Active Substance: DEXTROMETHORPHAN HYDROBROMIDE\GUAIFENESIN
     Indication: COUGH
     Dosage: 1200MG. PATIENT TOOK TOTAL 3 TABLETS IN 2 DAYS AT AN UNSPECIFIED FREQUENCY,FREQUENCY UNK
     Route: 065
     Dates: start: 20150511

REACTIONS (1)
  - Drug ineffective [Not Recovered/Not Resolved]
